FAERS Safety Report 22031310 (Version 2)
Quarter: 2023Q4

REPORT INFORMATION
  Report Type: Report from Study
  Country: US (occurrence: US)
  Receive Date: 20230223
  Receipt Date: 20231103
  Transmission Date: 20240110
  Serious: Yes (Hospitalization, Other)
  Sender: FDA-Public Use
  Company Number: US-ACADIA PHARMACEUTICALS INC.-ACA-2023-PIM-000396

PATIENT
  Sex: Female

DRUGS (7)
  1. NUPLAZID [Suspect]
     Active Substance: PIMAVANSERIN TARTRATE
     Indication: Parkinson^s disease psychosis
     Dosage: 34 MILLIGRAM, QD
     Route: 048
     Dates: start: 20230124
  2. ASPIRIN [Concomitant]
     Active Substance: ASPIRIN
  3. DONEPEZIL [Concomitant]
     Active Substance: DONEPEZIL
  4. LISINOPRIL [Concomitant]
     Active Substance: LISINOPRIL
  5. NICOTINE [Concomitant]
     Active Substance: NICOTINE
  6. ROSUVASTATIN [Concomitant]
     Active Substance: ROSUVASTATIN
  7. ZONISAMIDE [Concomitant]
     Active Substance: ZONISAMIDE

REACTIONS (3)
  - Transient ischaemic attack [Not Recovered/Not Resolved]
  - Irritability [Not Recovered/Not Resolved]
  - Abnormal behaviour [Not Recovered/Not Resolved]
